FAERS Safety Report 22651446 (Version 1)
Quarter: 2023Q2

REPORT INFORMATION
  Report Type: Spontaneous
  Country: BR (occurrence: BR)
  Receive Date: 20230628
  Receipt Date: 20230628
  Transmission Date: 20230722
  Serious: Yes (Other)
  Sender: FDA-Public Use
  Company Number: BR-ORGANON-O2306BRA002698

PATIENT
  Age: 64 Year
  Sex: Female
  Weight: 79.5 kg

DRUGS (11)
  1. VYTORIN [Suspect]
     Active Substance: EZETIMIBE\SIMVASTATIN
     Indication: Hypercholesterolaemia
     Dosage: UNK
     Route: 048
     Dates: start: 2020
  2. SIMVASTATIN [Suspect]
     Active Substance: SIMVASTATIN
     Indication: Hypercholesterolaemia
     Dosage: 20 MILLIGRAM
     Route: 048
  3. JANUMET [Concomitant]
     Active Substance: METFORMIN HYDROCHLORIDE\SITAGLIPTIN PHOSPHATE
     Indication: Diabetes mellitus
     Dosage: UNK
     Dates: start: 2020
  4. JARDIANCE [Concomitant]
     Active Substance: EMPAGLIFLOZIN
     Indication: Diabetes mellitus
     Dosage: 1 TABLET EVERY OTHER DAY
     Route: 048
  5. GLICLAZIDE [Concomitant]
     Active Substance: GLICLAZIDE
     Indication: Diabetes mellitus
     Dosage: 60 MILLIGRAM
  6. GLICLAZIDE [Concomitant]
     Active Substance: GLICLAZIDE
     Dosage: 30 MILLIGRAM
  7. LOTAR [AMLODIPINE BESILATE;LOSARTAN POTASSIUM] [Concomitant]
     Indication: Hypertension
     Dosage: UNK
  8. BENICARANLO [Concomitant]
     Indication: Hypertension
     Dosage: 1 TABLET DAILY
     Route: 048
  9. INDAPAMIDE [Concomitant]
     Active Substance: INDAPAMIDE
     Indication: Diuretic therapy
     Dosage: ONCE A DAY
  10. LOBEAT [Concomitant]
     Indication: Arrhythmia
     Dosage: 1 TABLET IN THE MORNING
     Route: 048
  11. LOBEAT [Concomitant]
     Dosage: 1 TABLET IN THE MORNING AND 1 IN THE NIGHT
     Route: 048
     Dates: start: 20230619

REACTIONS (6)
  - Dental care [Unknown]
  - Palpitations [Unknown]
  - Blood triglycerides increased [Unknown]
  - Heart rate increased [Unknown]
  - Hypertension [Unknown]
  - Abdominal discomfort [Unknown]

NARRATIVE: CASE EVENT DATE: 20230501
